FAERS Safety Report 5074651-8 (Version None)
Quarter: 2006Q3

REPORT INFORMATION
  Report Type: 
  Country: None (occurrence: None)
  Receive Date: 20060803
  Receipt Date: 20060724
  Transmission Date: 20061208
  Serious: Yes (Hospitalization, Other)
  Sender: FDA-Public Use
  Company Number: 2006083445

PATIENT
  Age: 69 Year
  Sex: Male
  Weight: 63.5036 kg

DRUGS (5)
  1. LIPITOR [Suspect]
     Indication: BLOOD CHOLESTEROL INCREASED
     Dosage: 20 MG (20 MG, 1 IN 1 D)
     Dates: start: 20060201
  2. ALL OTHER THERAPEUTIC PRODUCTS [Concomitant]
  3. LOTREL [Concomitant]
  4. ACETYLSALICYLIC ACID SRT [Concomitant]
  5. ROXICET [Concomitant]

REACTIONS (2)
  - CEREBROVASCULAR ACCIDENT [None]
  - PROSTATIC OPERATION [None]
